FAERS Safety Report 5204511-0 (Version None)
Quarter: 2007Q1

REPORT INFORMATION
  Report Type: 
  Country: None (occurrence: None)
  Receive Date: 20070110
  Receipt Date: 20060419
  Transmission Date: 20070707
  Serious: No
  Sender: FDA-Public Use
  Company Number: US-BRISTOL-MYERS SQUIBB COMPANY-13352562

PATIENT
  Age: 13 Year
  Sex: Male
  Weight: 67 kg

DRUGS (1)
  1. ABILIFY [Suspect]
     Dosage: DOSE VALUE:  DOSE GRADUALLY INCREASED TO 10 MG BY 31-AUG-2005.
     Dates: start: 20050401

REACTIONS (1)
  - WEIGHT INCREASED [None]
